FAERS Safety Report 9850865 (Version 3)
Quarter: 2014Q1

REPORT INFORMATION
  Report Type: Spontaneous
  Country: US (occurrence: US)
  Receive Date: 20140128
  Receipt Date: 20140307
  Transmission Date: 20141002
  Serious: Yes (Disabling, Other)
  Sender: FDA-Public Use
  Company Number: US-009507513-1401USA012307

PATIENT
  Age: 65 Year
  Sex: Female

DRUGS (9)
  1. FELBATOL [Suspect]
     Indication: PARTIAL SEIZURES
     Dosage: 300 MG, TID
     Route: 048
     Dates: start: 201401
  2. FELBATOL [Suspect]
     Dosage: 1400MG, QD
     Route: 048
     Dates: start: 1993, end: 1993
  3. FELBATOL [Suspect]
     Dosage: 1425 MG, QD
     Route: 048
     Dates: start: 1993
  4. FELBATOL [Suspect]
     Dosage: UNK
     Route: 048
     Dates: end: 201312
  5. AVASTIN (BEVACIZUMAB) [Suspect]
     Indication: CHEMOTHERAPY
     Dosage: UNK
     Dates: start: 2013
  6. CARMUSTINE [Suspect]
     Indication: CHEMOTHERAPY
     Dosage: UNK
     Dates: start: 2013
  7. TEGRETOL [Concomitant]
     Indication: CONVULSION
     Dosage: UNK
     Dates: start: 2013
  8. FRISIUM [Concomitant]
  9. CLOBAZAM [Concomitant]
     Indication: CONVULSION
     Dosage: UNK

REACTIONS (5)
  - Brain neoplasm malignant [Unknown]
  - Transfusion reaction [Recovered/Resolved]
  - Bone marrow failure [Unknown]
  - Thrombocytopenia [Recovered/Resolved]
  - Rash [Recovered/Resolved]
